FAERS Safety Report 4703060-3 (Version None)
Quarter: 2005Q2

REPORT INFORMATION
  Report Type: 
  Country: None (occurrence: None)
  Receive Date: 20050628
  Receipt Date: 20050628
  Transmission Date: 20051028
  Serious: Yes (Hospitalization)
  Sender: FDA-Public Use
  Company Number: None

PATIENT
  Age: 53 Year
  Sex: Male
  Weight: 71.2 kg

DRUGS (7)
  1. ASPIRIN [Suspect]
     Indication: BACK PAIN
     Dosage: 650 MG QD 75 QD
     Dates: start: 20040401
  2. ASPIRIN [Suspect]
     Indication: CATHETERISATION CARDIAC
     Dosage: 650 MG QD 75 QD
     Dates: start: 20040401
  3. ZETIA [Concomitant]
  4. NIASPAN [Concomitant]
  5. CRESTOR [Concomitant]
  6. FISH OIL [Concomitant]
  7. MULTI-VITAMIN [Concomitant]

REACTIONS (2)
  - FAECES DISCOLOURED [None]
  - MELAENA [None]
